FAERS Safety Report 16274074 (Version 3)
Quarter: 2019Q2

REPORT INFORMATION
  Report Type: Report from Study
  Country: CA (occurrence: CA)
  Receive Date: 20190504
  Receipt Date: 20190603
  Transmission Date: 20190711
  Serious: Yes (Hospitalization)
  Sender: FDA-Public Use
  Company Number: CA-HLSUS-2019-CA-000299

PATIENT
  Age: 56 Year
  Sex: Male
  Weight: 104.33 kg

DRUGS (5)
  1. MELATONIN [Concomitant]
     Active Substance: MELATONIN
     Indication: SLEEP DISORDER
     Dosage: 6 MG AT BEDTIME
     Route: 048
     Dates: start: 20180416
  2. ABILIFY [Concomitant]
     Active Substance: ARIPIPRAZOLE
     Indication: SCHIZOAFFECTIVE DISORDER
     Dosage: 5 MG
     Route: 048
     Dates: start: 20180629, end: 20190517
  3. TOPIRAMATE. [Concomitant]
     Active Substance: TOPIRAMATE
     Indication: AFFECTIVE DISORDER
     Dosage: 50 MG MORNING AND 75 MG AT BEDTIME
     Route: 048
  4. CLOZARIL [Suspect]
     Active Substance: CLOZAPINE
     Dosage: 12.5 MG AT BEDTIME
     Route: 048
     Dates: start: 20190222
  5. ZOPICLONE [Concomitant]
     Active Substance: ZOPICLONE
     Indication: SLEEP DISORDER
     Dosage: 7.5 MG AT BEDTIME
     Route: 048
     Dates: start: 20181207

REACTIONS (19)
  - Chest pain [Unknown]
  - Left atrial enlargement [Unknown]
  - Chills [Unknown]
  - Neutrophil count decreased [Unknown]
  - Troponin increased [Unknown]
  - Abdominal pain [Unknown]
  - White blood cell count decreased [Unknown]
  - Malaise [Unknown]
  - Nasal congestion [Unknown]
  - Hot flush [Unknown]
  - Influenza like illness [Unknown]
  - Hyperhidrosis [Unknown]
  - Pyrexia [Recovered/Resolved]
  - Haemoglobin decreased [Unknown]
  - Productive cough [Unknown]
  - C-reactive protein increased [Recovered/Resolved]
  - Nausea [Unknown]
  - Vomiting [Unknown]
  - Heart rate increased [Unknown]

NARRATIVE: CASE EVENT DATE: 20190305
